FAERS Safety Report 17075705 (Version 4)
Quarter: 2020Q1

REPORT INFORMATION
  Report Type: Spontaneous
  Country: US (occurrence: US)
  Receive Date: 20191126
  Receipt Date: 20200128
  Transmission Date: 20200409
  Serious: No
  Sender: FDA-Public Use
  Company Number: US-PFIZER INC-2019508402

PATIENT
  Age: 68 Year
  Sex: Male
  Weight: 89.81 kg

DRUGS (4)
  1. ADVIL [Suspect]
     Active Substance: IBUPROFEN
     Indication: BACK PAIN
     Dosage: 200 MG, AS NEEDED [ONLY TOOK ONE AT A TIME, 200MG, AS NEEDED] (ONE TABLET OCT ONE TABLET NOV)
     Route: 048
     Dates: start: 1994
  2. ADVIL [Suspect]
     Active Substance: IBUPROFEN
     Dosage: 1 DF, (1 TABLET)
     Dates: start: 201910
  3. ADVIL [Suspect]
     Active Substance: IBUPROFEN
     Dosage: 1 DF, (1 TABLET)
     Dates: start: 201911, end: 201911
  4. ADVIL [Suspect]
     Active Substance: IBUPROFEN
     Dosage: UNK

REACTIONS (6)
  - Throat irritation [Recovered/Resolved]
  - Drug ineffective [Recovered/Resolved]
  - Oral discomfort [Recovered/Resolved]
  - Product coating issue [Unknown]
  - Poor quality product administered [Unknown]
  - Oropharyngeal pain [Recovered/Resolved]

NARRATIVE: CASE EVENT DATE: 2019
